FAERS Safety Report 4447928-4 (Version None)
Quarter: 2004Q3

REPORT INFORMATION
  Report Type: 
  Country: None (occurrence: None)
  Receive Date: 20040913
  Receipt Date: 20040528
  Transmission Date: 20050211
  Serious: Yes (Other)
  Sender: FDA-Public Use
  Company Number: DE-ROCHE-369571

PATIENT
  Sex: Male

DRUGS (1)
  1. ROCEPHIN [Suspect]
     Dosage: 2 GRAMS TAKEN 14 TIMES IN TOTAL.
     Route: 042
     Dates: start: 20030515, end: 20030515

REACTIONS (4)
  - EJECTION FRACTION ABNORMAL [None]
  - HYPOGONADISM [None]
  - PITUITARY TUMOUR BENIGN [None]
  - UROGENITAL DISORDER [None]
